FAERS Safety Report 23073616 (Version 1)
Quarter: 2023Q4

REPORT INFORMATION
  Report Type: Spontaneous
  Country: ES (occurrence: ES)
  Receive Date: 20231017
  Receipt Date: 20231017
  Transmission Date: 20240110
  Serious: Yes (Hospitalization, Other)
  Sender: FDA-Public Use
  Company Number: ES-CHEPLA-1200141703

PATIENT
  Age: 77 Year
  Sex: Female

DRUGS (1)
  1. CAPECITABINE [Suspect]
     Active Substance: CAPECITABINE
     Indication: Colon neoplasm
     Route: 048

REACTIONS (9)
  - Hypocalcaemia [Unknown]
  - Hypoalbuminaemia [Unknown]
  - Leukopenia [Unknown]
  - Proctalgia [Unknown]
  - Prothrombin level decreased [Unknown]
  - Colitis ulcerative [Unknown]
  - Diarrhoea [Unknown]
  - Abdominal pain [Unknown]
  - Rectal haemorrhage [Unknown]
